FAERS Safety Report 8117940-2 (Version None)
Quarter: 2012Q1

REPORT INFORMATION
  Report Type: 
  Country: None (occurrence: None)
  Receive Date: 20120207
  Receipt Date: 20120203
  Transmission Date: 20120608
  Serious: No
  Sender: FDA-Public Use
  Company Number: US-BAYER-2012-011626

PATIENT
  Sex: Female

DRUGS (2)
  1. MIRENA [Suspect]
     Dosage: 20 MCG/24HR, CONT
     Route: 015
  2. ST. JOHN'S WORT [Concomitant]

REACTIONS (5)
  - VAGINAL DISCHARGE [None]
  - MUSCLE SPASMS [None]
  - AMENORRHOEA [None]
  - MOOD ALTERED [None]
  - FEELING ABNORMAL [None]
